FAERS Safety Report 9020769 (Version 1)
Quarter: 2013Q1

REPORT INFORMATION
  Report Type: Spontaneous
  Country: US (occurrence: US)
  Receive Date: 20130119
  Receipt Date: 20130119
  Transmission Date: 20140127
  Serious: No
  Sender: FDA-Public Use
  Company Number: US-ALLERGAN-200219678

PATIENT
  Age: 31 Year
  Sex: Female
  Weight: 49.09 kg

DRUGS (2)
  1. BOTOX [Suspect]
     Indication: TORTICOLLIS
     Dosage: UNK
     Route: 030
     Dates: start: 20120327, end: 20120327
  2. BOTOX [Suspect]
     Dosage: UNK
     Dates: start: 20021105, end: 20021105

REACTIONS (4)
  - Muscle spasms [Unknown]
  - Dysphagia [Recovering/Resolving]
  - Dizziness [Recovering/Resolving]
  - Dystonia [Unknown]
